FAERS Safety Report 8689853 (Version 2)
Quarter: 2014Q2

REPORT INFORMATION
  Report Type: Spontaneous
  Country: US (occurrence: US)
  Receive Date: 20120727
  Receipt Date: 20140402
  Transmission Date: 20141212
  Serious: No
  Sender: FDA-Public Use
  Company Number: US-ASTRAZENECA-2012SE03877

PATIENT
  Age: 50 Year
  Sex: Male
  Weight: 81.6 kg

DRUGS (8)
  1. SEROQUEL XR [Suspect]
     Indication: INSOMNIA
     Route: 048
     Dates: start: 2006
  2. SEROQUEL XR [Suspect]
     Indication: INSOMNIA
     Route: 048
     Dates: start: 2006
  3. SEROQUEL XR [Suspect]
     Indication: INSOMNIA
     Route: 048
  4. SEROQUEL XR [Suspect]
     Indication: INSOMNIA
     Route: 048
  5. KLONOPIN [Concomitant]
     Indication: TACHYPHRENIA
     Dates: start: 2006
  6. GINKO BILOBA [Concomitant]
  7. LAXATIVES [Concomitant]
     Indication: CONSTIPATION
  8. PAIN MEDICATION [Concomitant]
     Indication: MUSCULOSKELETAL DISCOMFORT

REACTIONS (10)
  - Anxiety [Unknown]
  - Insomnia [Unknown]
  - Depression [Unknown]
  - Malaise [Unknown]
  - Adverse drug reaction [Unknown]
  - Diarrhoea [Not Recovered/Not Resolved]
  - Vomiting [Not Recovered/Not Resolved]
  - Constipation [Not Recovered/Not Resolved]
  - Drug dose omission [Unknown]
  - Intentional product misuse [Unknown]
